FAERS Safety Report 19996308 (Version 1)
Quarter: 2021Q4

REPORT INFORMATION
  Report Type: Spontaneous
  Country: US (occurrence: US)
  Receive Date: 20211025
  Receipt Date: 20211025
  Transmission Date: 20220303
  Serious: No
  Sender: FDA-Public Use
  Company Number: US-ENDO PHARMACEUTICALS INC-2021-011491

PATIENT
  Sex: Female

DRUGS (1)
  1. QWO [Suspect]
     Active Substance: COLLAGENASE CLOSTRIDIUM HISTOLYTICUM-AAES
     Indication: Peau d^orange
     Dosage: 10.08 MG, UNKNOWN HCP REPORTED INTENTIONALLY USING 12 VIALS OF THE 4 ML/0.84 MG OF QWO)
     Route: 065

REACTIONS (3)
  - Contusion [Unknown]
  - Incorrect dose administered [Unknown]
  - Off label use [Unknown]
